FAERS Safety Report 5929111-6 (Version None)
Quarter: 2008Q4

REPORT INFORMATION
  Report Type: 
  Country: None (occurrence: None)
  Receive Date: 20081024
  Receipt Date: 20081017
  Transmission Date: 20090506
  Serious: Yes (Other)
  Sender: FDA-Public Use
  Company Number: GB-TEVA-179096ISR

PATIENT
  Age: 64 Year
  Sex: Female

DRUGS (1)
  1. AMITRIPTYLINE HCL [Suspect]
     Indication: NEURALGIA
     Route: 048
     Dates: start: 20071001, end: 20080801

REACTIONS (1)
  - TOOTH LOSS [None]
